FAERS Safety Report 8863357 (Version 1)
Quarter: 2012Q4

REPORT INFORMATION
  Report Type: 
  Country: JP (occurrence: JP)
  Receive Date: 20121025
  Receipt Date: 20121025
  Transmission Date: 20130627
  Serious: Yes (Hospitalization, Disabling)
  Sender: FDA-Public Use
  Company Number: JP-GLAXOSMITHKLINE-B0839826A

PATIENT
  Sex: Male

DRUGS (1)
  1. ARRANON [Suspect]
     Indication: ACUTE LYMPHOCYTIC LEUKAEMIA
     Dosage: 650MGM2 Per day
     Route: 042
     Dates: start: 20120416, end: 20120802

REACTIONS (3)
  - Neuropathy peripheral [Not Recovered/Not Resolved]
  - Nervous system disorder [Not Recovered/Not Resolved]
  - Disease progression [Not Recovered/Not Resolved]
